FAERS Safety Report 10672226 (Version 1)
Quarter: 2014Q4

REPORT INFORMATION
  Report Type: Spontaneous
  Country: DK (occurrence: DK)
  Receive Date: 20141223
  Receipt Date: 20141223
  Transmission Date: 20150529
  Serious: Yes (Life-Threatening)
  Sender: FDA-Public Use
  Company Number: DK-NOVOPROD-432800

PATIENT
  Age: 42 Year
  Sex: Female
  Weight: 70 kg

DRUGS (1)
  1. ESTROFEM [Suspect]
     Active Substance: ESTRADIOL CYPIONATE
     Indication: MENOPAUSAL SYMPTOMS
     Dosage: 1 MG, QD
     Route: 048
     Dates: start: 20140214, end: 20141209

REACTIONS (3)
  - Cardiac arrest [Recovered/Resolved]
  - Percutaneous coronary intervention [Recovered/Resolved]
  - Acute myocardial infarction [Recovering/Resolving]

NARRATIVE: CASE EVENT DATE: 20141119
